FAERS Safety Report 4497046-4 (Version None)
Quarter: 2004Q4

REPORT INFORMATION
  Report Type: 
  Country: None (occurrence: None)
  Receive Date: 20041108
  Receipt Date: 20040713
  Transmission Date: 20050328
  Serious: Yes (Hospitalization)
  Sender: FDA-Public Use
  Company Number: US_0406103699

PATIENT
  Age: 69 Year
  Sex: Female

DRUGS (7)
  1. PROZAC [Suspect]
     Indication: OBSESSIVE-COMPULSIVE DISORDER
     Dosage: 20 MG/1 DAY
     Dates: start: 20010101
  2. ZOCOR [Concomitant]
  3. LIPITOR [Concomitant]
  4. COZAAR [Concomitant]
  5. CELEXA [Concomitant]
  6. ISOSORBIDE [Concomitant]
  7. KCL (POTASSIUM CHLORIDE) [Concomitant]

REACTIONS (1)
  - LIVER FUNCTION TEST ABNORMAL [None]
